FAERS Safety Report 9236836 (Version 1)
Quarter: 2013Q2

REPORT INFORMATION
  Report Type: Spontaneous
  Country: HR (occurrence: HR)
  Receive Date: 20130417
  Receipt Date: 20130417
  Transmission Date: 20140414
  Serious: Yes (Other)
  Sender: FDA-Public Use
  Company Number: HR-BAXTER-2013BAX009590

PATIENT
  Age: 42 Year
  Sex: Female

DRUGS (1)
  1. KIOVIG 100 MG/ ML OTOPINA ZA INFUZIJO [Suspect]
     Indication: IMMUNODEFICIENCY COMMON VARIABLE
     Route: 042
     Dates: start: 20130211, end: 20130211

REACTIONS (4)
  - Chest pain [Recovered/Resolved]
  - Back pain [Recovered/Resolved]
  - Choking [Recovered/Resolved]
  - Dyspnoea [Recovered/Resolved]
